FAERS Safety Report 18134887 (Version 1)
Quarter: 2020Q3

REPORT INFORMATION
  Report Type: Spontaneous
  Country: JP (occurrence: JP)
  Receive Date: 20200811
  Receipt Date: 20200811
  Transmission Date: 20201103
  Serious: Yes (Hospitalization)
  Sender: FDA-Public Use
  Company Number: JP-ELI_LILLY_AND_COMPANY-JP202007005951

PATIENT
  Age: 67 Year
  Sex: Female

DRUGS (2)
  1. ABRAXANE [Suspect]
     Active Substance: PACLITAXEL
     Indication: GASTRIC CANCER
     Dosage: 100 MG/KG
     Route: 065
     Dates: start: 202005
  2. CYRAMZA [Suspect]
     Active Substance: RAMUCIRUMAB
     Indication: GASTRIC CANCER
     Dosage: 8 MG/KG
     Route: 041
     Dates: start: 202005

REACTIONS (2)
  - Ascites [Recovered/Resolved]
  - Chylothorax [Recovered/Resolved]

NARRATIVE: CASE EVENT DATE: 202006
